FAERS Safety Report 22199264 (Version 1)
Quarter: 2023Q2

REPORT INFORMATION
  Report Type: Spontaneous
  Country: VE (occurrence: VE)
  Receive Date: 20230411
  Receipt Date: 20230411
  Transmission Date: 20230722
  Serious: Yes (Death, Other)
  Sender: FDA-Public Use
  Company Number: VE-ALKEM LABORATORIES LIMITED-VE-ALKEM-2022-03045

PATIENT
  Age: 28 Year
  Sex: Male

DRUGS (8)
  1. CLOZAPINE [Suspect]
     Active Substance: CLOZAPINE
     Indication: Schizoaffective disorder
     Dosage: 50 MILLIGRAM PER DAY
     Route: 065
     Dates: start: 201311
  2. CLOZAPINE [Suspect]
     Active Substance: CLOZAPINE
     Dosage: 500 MILLIGRAM PER DAY
     Route: 065
     Dates: start: 201312
  3. CLOZAPINE [Suspect]
     Active Substance: CLOZAPINE
     Dosage: 200 MILLIGRAM PER DAY
     Route: 065
     Dates: start: 201402
  4. QUETIAPINE FUMARATE [Suspect]
     Active Substance: QUETIAPINE FUMARATE
     Indication: Bipolar disorder
     Dosage: 900 MILLIGRAM PER DAY
     Route: 065
  5. OXCARBAZEPINE [Suspect]
     Active Substance: OXCARBAZEPINE
     Indication: Bipolar disorder
     Dosage: 1200 MILLIGRAM PER DAY
     Route: 065
  6. CLONAZEPAM [Suspect]
     Active Substance: CLONAZEPAM
     Indication: Bipolar disorder
     Dosage: 6 MILLIGRAM PER DAY
     Route: 065
  7. CLONAZEPAM [Suspect]
     Active Substance: CLONAZEPAM
     Dosage: 2 MILLIGRAM PER DAY
     Route: 065
     Dates: start: 201401
  8. PALIPERIDONE [Concomitant]
     Active Substance: PALIPERIDONE
     Indication: Schizoaffective disorder
     Dosage: 6 MILLIGRAM
     Route: 065

REACTIONS (2)
  - Colitis ischaemic [Fatal]
  - Therapy partial responder [Unknown]
